FAERS Safety Report 23000072 (Version 2)
Quarter: 2024Q2

REPORT INFORMATION
  Report Type: Report from Study
  Country: CA (occurrence: None)
  Receive Date: 20230928
  Receipt Date: 20240624
  Transmission Date: 20240716
  Serious: Yes (Other)
  Sender: FDA-Public Use
  Company Number: CA-PFIZER INC-202300309323

PATIENT
  Age: 67 Year
  Sex: Male

DRUGS (16)
  1. METHOTREXATE [Suspect]
     Active Substance: METHOTREXATE
     Indication: Product used for unknown indication
  2. ACTEMRA [Suspect]
     Active Substance: TOCILIZUMAB
     Indication: Giant cell arteritis
     Dosage: CYCLICAL
  3. ACTEMRA [Suspect]
     Active Substance: TOCILIZUMAB
  4. LEFLUNOMIDE [Suspect]
     Active Substance: LEFLUNOMIDE
     Indication: Product used for unknown indication
  5. PREDNISONE [Suspect]
     Active Substance: PREDNISONE
     Indication: Product used for unknown indication
  6. ALENDRONATE SODIUM [Concomitant]
     Active Substance: ALENDRONATE SODIUM
  7. AMLODIPINE [Concomitant]
     Active Substance: AMLODIPINE BESYLATE
  8. ERYTHROMYCIN [Concomitant]
     Active Substance: ERYTHROMYCIN
  9. FOLIC ACID [Concomitant]
     Active Substance: FOLIC ACID
  10. HYDROXYCHLOROQUINE [Concomitant]
     Active Substance: HYDROXYCHLOROQUINE
  11. PANTOPRAZOLE [Concomitant]
     Active Substance: PANTOPRAZOLE
  12. PREGABALIN [Concomitant]
     Active Substance: PREGABALIN
  13. ROSUVASTATIN [Concomitant]
     Active Substance: ROSUVASTATIN
  14. SULFATRIM [Concomitant]
     Active Substance: SULFAMETHOXAZOLE\TRIMETHOPRIM
  15. TAMSULOSIN [Concomitant]
     Active Substance: TAMSULOSIN
  16. XARELTO [Concomitant]
     Active Substance: RIVAROXABAN

REACTIONS (7)
  - Arthritis [Unknown]
  - Chondrocalcinosis [Unknown]
  - Fracture [Unknown]
  - Osteoporosis [Unknown]
  - Peripheral swelling [Unknown]
  - Giant cell arteritis [Unknown]
  - Off label use [Unknown]
